FAERS Safety Report 20918442 (Version 3)
Quarter: 2024Q3

REPORT INFORMATION
  Report Type: Report from Study
  Country: US (occurrence: US)
  Receive Date: 20220606
  Receipt Date: 20240926
  Transmission Date: 20241017
  Serious: Yes (Other)
  Sender: ABBVIE
  Company Number: US-ABBVIE-22K-163-4421405-00

PATIENT
  Age: 76 Year
  Sex: Male
  Weight: 89 kg

DRUGS (6)
  1. HUMIRA [Suspect]
     Active Substance: ADALIMUMAB
     Indication: Colitis ulcerative
     Route: 058
     Dates: start: 201802, end: 202001
  2. HUMIRA [Suspect]
     Active Substance: ADALIMUMAB
     Route: 058
     Dates: start: 202001
  3. CALCIUM CARBONATE [Concomitant]
     Active Substance: CALCIUM CARBONATE
     Indication: Osteopenia
     Dosage: CHEWABLE GUMMY
     Route: 048
     Dates: start: 201802
  4. VITAMIN D3 [Concomitant]
     Active Substance: CHOLECALCIFEROL
     Indication: Osteopenia
     Route: 048
     Dates: start: 201802
  5. NORVASC [Concomitant]
     Active Substance: AMLODIPINE BESYLATE
     Indication: Hypertension
     Route: 048
     Dates: start: 2018
  6. EFUDEX [Concomitant]
     Active Substance: FLUOROURACIL
     Indication: Actinic keratosis
     Dosage: 5 %
     Route: 061
     Dates: start: 2017

REACTIONS (1)
  - Pyoderma gangrenosum [Recovered/Resolved]

NARRATIVE: CASE EVENT DATE: 20210517
